FAERS Safety Report 9607448 (Version 1)
Quarter: 2013Q4

REPORT INFORMATION
  Report Type: Spontaneous
  Country: DE (occurrence: None)
  Receive Date: 20131004
  Receipt Date: 20131004
  Transmission Date: 20140711
  Serious: Yes (Hospitalization, Other)
  Sender: FDA-Public Use
  Company Number: CO-OR-DE-2013-100

PATIENT
  Age: 63 Year
  Sex: Female

DRUGS (1)
  1. PREDNISOLONE (PREDNISOLONE) [Suspect]
     Indication: SARCOIDOSIS

REACTIONS (5)
  - Respiratory disorder [None]
  - Condition aggravated [None]
  - Dyspnoea [None]
  - Hepatopulmonary syndrome [None]
  - Drug ineffective [None]
